FAERS Safety Report 4390412-7 (Version None)
Quarter: 2004Q2

REPORT INFORMATION
  Report Type: 
  Country: None (occurrence: None)
  Receive Date: 20040630
  Receipt Date: 20040616
  Transmission Date: 20050107
  Serious: Yes (Death, Other)
  Sender: FDA-Public Use
  Company Number: USA-2004-0013977

PATIENT
  Age: 48 Year
  Sex: Male
  Weight: 76.2 kg

DRUGS (8)
  1. OXYCONTIN [Suspect]
     Indication: PAIN
     Dosage: SEE IMAGE
     Route: 048
     Dates: start: 20030710, end: 20040220
  2. OXYCONTIN [Suspect]
     Indication: PAIN
     Dosage: SEE IMAGE
     Route: 048
     Dates: start: 20040408
  3. BENZODIAZEPINE DERIVATIVES() [Suspect]
  4. TRAMADOL HCL [Suspect]
  5. OXYMORPHONE HYDROCHLORIDE [Suspect]
  6. ULTRAM [Concomitant]
  7. CELEBREX [Concomitant]
  8. SOMA [Concomitant]

REACTIONS (6)
  - ACCIDENTAL OVERDOSE [None]
  - CARDIAC ARREST [None]
  - CIRCULATORY COLLAPSE [None]
  - DRUG DEPENDENCE [None]
  - MALAISE [None]
  - NAUSEA [None]
